FAERS Safety Report 8783017 (Version 1)
Quarter: 2012Q4

REPORT INFORMATION
  Report Type: 
  Country: US (occurrence: US)
  Receive Date: 20120913
  Receipt Date: 20120913
  Transmission Date: 20130627
  Serious: No
  Sender: FDA-Public Use
  Company Number: US-VERTEX PHARMACEUTICAL INC.-AE-2012-009621

PATIENT
  Age: 51 Year
  Sex: Male
  Weight: 67.27 kg

DRUGS (5)
  1. INCIVEK [Suspect]
     Indication: HEPATITIS C
     Route: 048
     Dates: start: 20120621
  2. RIBAVIRIN [Concomitant]
     Indication: HEPATITIS C
     Dates: start: 20120621
  3. PEGASYS [Concomitant]
     Indication: HEPATITIS C
     Route: 058
     Dates: start: 20120621
  4. KALETRA [Concomitant]
     Indication: HIV INFECTION
  5. TRIZIVIR [Concomitant]
     Indication: HIV INFECTION

REACTIONS (4)
  - Inappropriate schedule of drug administration [Recovered/Resolved]
  - Off label use [Unknown]
  - Injection site pruritus [Not Recovered/Not Resolved]
  - Insomnia [Not Recovered/Not Resolved]
